FAERS Safety Report 15499634 (Version 2)
Quarter: 2018Q4

REPORT INFORMATION
  Report Type: Report from Study
  Country: MX (occurrence: MX)
  Receive Date: 20181015
  Receipt Date: 20181017
  Transmission Date: 20190205
  Serious: Yes (Death)
  Sender: FDA-Public Use
  Company Number: PHHY2018MX125046

PATIENT
  Age: 85 Year
  Sex: Female

DRUGS (2)
  1. CAPTORIL [Concomitant]
     Active Substance: CAPTOPRIL
     Indication: HYPERTENSION
     Dosage: 2 DF, QD (ALMOST 6 YEARS AGO) (1 TABIN MORNING AND A NIGHT)
     Route: 048
  2. CO-DIOVAN [Suspect]
     Active Substance: HYDROCHLOROTHIAZIDE\VALSARTAN
     Indication: HYPERTENSION
     Dosage: 1 DF, QD (12.5 MG HYDROCHLORTHIAZIDE, 80 MG VALSARTAN) ALMOST 6 YEARS AGO
     Route: 048

REACTIONS (1)
  - Cardiac arrest [Fatal]

NARRATIVE: CASE EVENT DATE: 20180927
